FAERS Safety Report 10178151 (Version 3)
Quarter: 2014Q2

REPORT INFORMATION
  Report Type: Spontaneous
  Country: US (occurrence: US)
  Receive Date: 20140519
  Receipt Date: 20140620
  Transmission Date: 20141212
  Serious: No
  Sender: FDA-Public Use
  Company Number: US-009507513-1405USA007271

PATIENT
  Age: 25 Year
  Sex: Female
  Weight: 75.28 kg

DRUGS (1)
  1. IMPLANON [Suspect]
     Indication: CONTRACEPTION
     Dosage: UNK
     Route: 058
     Dates: start: 20111110, end: 20140514

REACTIONS (1)
  - Unintended pregnancy [Not Recovered/Not Resolved]
